FAERS Safety Report 9730501 (Version 1)
Quarter: 2013Q4

REPORT INFORMATION
  Report Type: Spontaneous
  Country: US (occurrence: US)
  Receive Date: 20131202
  Receipt Date: 20131202
  Transmission Date: 20140711
  Serious: No
  Sender: FDA-Public Use
  Company Number: US-009507513-1311USA009072

PATIENT
  Age: 29 Year
  Sex: Female

DRUGS (2)
  1. NEXPLANON [Suspect]
     Indication: CONTRACEPTION
     Dosage: ONE ROAD EVERY THREE YEARS
     Route: 059
     Dates: start: 20130926, end: 20131120
  2. NEXPLANON [Suspect]
     Dosage: UNK
     Dates: start: 20131120

REACTIONS (8)
  - Furuncle [Recovering/Resolving]
  - Device extrusion [Recovering/Resolving]
  - Device dislocation [Recovering/Resolving]
  - Device expulsion [Recovering/Resolving]
  - Injection site rash [Recovering/Resolving]
  - Implant site pruritus [Recovering/Resolving]
  - Implant site swelling [Recovering/Resolving]
  - Implant site erythema [Recovering/Resolving]
